FAERS Safety Report 8237265-4 (Version None)
Quarter: 2012Q1

REPORT INFORMATION
  Report Type: 
  Country: None (occurrence: None)
  Receive Date: 20120327
  Receipt Date: 20120327
  Transmission Date: 20120608
  Serious: Yes (Life-Threatening, Hospitalization)
  Sender: FDA-Public Use
  Company Number: None

PATIENT
  Age: 52 Year
  Sex: Female
  Weight: 52.163 kg

DRUGS (8)
  1. GABAPENTIN [Suspect]
     Indication: INSOMNIA
     Dosage: 1200 3 X DAILY
     Route: 048
     Dates: start: 20110410, end: 20110715
  2. GABAPENTIN [Suspect]
     Indication: NEUROPATHY PERIPHERAL
     Dosage: 1200 3 X DAILY
     Route: 048
     Dates: start: 20110410, end: 20110715
  3. GABAPENTIN [Suspect]
     Indication: ANXIETY
     Dosage: 1200 3 X DAILY
     Route: 048
     Dates: start: 20110410, end: 20110715
  4. GABAPENTIN [Suspect]
     Indication: APHAGIA
     Dosage: 1200 3 X DAILY
     Route: 048
     Dates: start: 20110410, end: 20110715
  5. GAPENTIN [Concomitant]
     Indication: APHAGIA
     Dosage: 1200MG AT NIGHT
     Route: 048
     Dates: start: 20120310, end: 20120320
  6. GAPENTIN [Concomitant]
     Indication: NEUROPATHY PERIPHERAL
     Dosage: 1200MG AT NIGHT
     Route: 048
     Dates: start: 20120310, end: 20120320
  7. GAPENTIN [Concomitant]
     Indication: INSOMNIA
     Dosage: 1200MG AT NIGHT
     Route: 048
     Dates: start: 20120310, end: 20120320
  8. GAPENTIN [Concomitant]
     Indication: ANXIETY
     Dosage: 1200MG AT NIGHT
     Route: 048
     Dates: start: 20120310, end: 20120320

REACTIONS (3)
  - BLADDER DISORDER [None]
  - CYSTITIS [None]
  - PAIN [None]
